FAERS Safety Report 17014421 (Version 3)
Quarter: 2020Q1

REPORT INFORMATION
  Report Type: Report from Study
  Country: None (occurrence: US)
  Receive Date: 20191111
  Receipt Date: 20200210
  Transmission Date: 20200409
  Serious: Yes (Other)
  Sender: FDA-Public Use
  Company Number: US-ABBVIE-19K-163-2995484-00

PATIENT
  Sex: Female
  Weight: 63.56 kg

DRUGS (6)
  1. IMMUNOGLOBULINS NOS [Concomitant]
     Active Substance: IMMUNE GLOBULIN NOS
     Indication: PRODUCT USED FOR UNKNOWN INDICATION
     Route: 065
  2. SIMVASTATIN. [Concomitant]
     Active Substance: SIMVASTATIN
     Indication: BLOOD CHOLESTEROL
  3. VENCLEXTA [Suspect]
     Active Substance: VENETOCLAX
     Indication: CHRONIC LYMPHOCYTIC LEUKAEMIA
     Route: 048
     Dates: start: 20181228, end: 201903
  4. LISINOPRIL. [Concomitant]
     Active Substance: LISINOPRIL
     Indication: BLOOD PRESSURE MEASUREMENT
  5. VENCLEXTA [Suspect]
     Active Substance: VENETOCLAX
     Dosage: THREE DAYS A WEEK
     Route: 048
  6. VENCLEXTA [Suspect]
     Active Substance: VENETOCLAX
     Dosage: OTHER DAYS
     Route: 048

REACTIONS (7)
  - Depressed mood [Recovered/Resolved]
  - White blood cell count decreased [Not Recovered/Not Resolved]
  - Skin cancer [Recovering/Resolving]
  - Dyspnoea [Recovered/Resolved]
  - Red blood cell count decreased [Recovering/Resolving]
  - Haemoglobin decreased [Not Recovered/Not Resolved]
  - Platelet count decreased [Not Recovered/Not Resolved]

NARRATIVE: CASE EVENT DATE: 2018
